FAERS Safety Report 16795164 (Version 4)
Quarter: 2022Q2

REPORT INFORMATION
  Report Type: Spontaneous
  Country: SI (occurrence: SI)
  Receive Date: 20190911
  Receipt Date: 20220513
  Transmission Date: 20220721
  Serious: Yes (Death, Other)
  Sender: FDA-Public Use
  Company Number: SI-NOVPHSZ-PHHY2019SI082987

PATIENT
  Age: 55 Year
  Sex: Female

DRUGS (2)
  1. SILDENAFIL [Suspect]
     Active Substance: SILDENAFIL
     Indication: Right ventricular failure
     Dosage: UNK
     Route: 065
     Dates: start: 2007
  2. SILDENAFIL [Suspect]
     Active Substance: SILDENAFIL
     Indication: Pulmonary arterial hypertension
     Dosage: UNK
     Route: 065

REACTIONS (9)
  - Acute kidney injury [Fatal]
  - Chronic respiratory failure [Fatal]
  - Pneumothorax [Unknown]
  - Dyspnoea at rest [Unknown]
  - Weight decreased [Unknown]
  - Langerhans^ cell histiocytosis [Unknown]
  - Respiratory failure [Recovered/Resolved]
  - Oxygen saturation decreased [Unknown]
  - Chest pain [Recovered/Resolved]

NARRATIVE: CASE EVENT DATE: 20120101
